FAERS Safety Report 10029794 (Version 2)
Quarter: 2014Q1

REPORT INFORMATION
  Report Type: Spontaneous
  Country: US (occurrence: None)
  Receive Date: 20140319
  Receipt Date: 20140326
  Transmission Date: 20141002
  Serious: Yes (Hospitalization)
  Sender: FDA-Public Use
  Company Number: FK201400885

PATIENT
  Age: 44 Year
  Sex: Male

DRUGS (2)
  1. CISPLATIN (MANUFACTURER UNKNOWN) (CISPLATIN) (CISPLATIN) [Suspect]
     Indication: PANCREATIC CARCINOMA METASTATIC
     Dosage: DAYS 1 AND 15 OF A 4 -WEEK CYCLE
  2. GEMCITABINE (GEMCITABINE) [Concomitant]

REACTIONS (7)
  - Blood pressure increased [None]
  - Aortic dissection [None]
  - Pleural effusion [None]
  - Atelectasis [None]
  - Carotid artery dissection [None]
  - Peripheral artery dissection [None]
  - Aortic thrombosis [None]
